FAERS Safety Report 17070964 (Version 1)
Quarter: 2019Q4

REPORT INFORMATION
  Report Type: Spontaneous
  Country: US (occurrence: US)
  Receive Date: 20191125
  Receipt Date: 20191125
  Transmission Date: 20200122
  Serious: Yes (Disabling, Other)
  Sender: FDA-Public Use
  Company Number: US-BRISTOL-MYERS SQUIBB COMPANY-BMS-2019-109714

PATIENT
  Sex: Female

DRUGS (2)
  1. KENALOG-40 [Suspect]
     Active Substance: TRIAMCINOLONE ACETONIDE
     Indication: NERVE BLOCK
     Dosage: UNK
     Route: 065
     Dates: start: 201711
  2. KENALOG-40 [Suspect]
     Active Substance: TRIAMCINOLONE ACETONIDE
     Indication: PRODUCT USED FOR UNKNOWN INDICATION
     Dosage: 180 MILLIGRAM
     Route: 065
     Dates: start: 20180207

REACTIONS (16)
  - Malaise [Unknown]
  - Pharyngeal swelling [Unknown]
  - Osteitis [Unknown]
  - Anxiety [Unknown]
  - Alopecia [Unknown]
  - Overdose [Unknown]
  - Intentional product use issue [Unknown]
  - Bedridden [Unknown]
  - Hypersensitivity [Unknown]
  - Sluggishness [Unknown]
  - Shock [Unknown]
  - Eating disorder [Unknown]
  - Weight increased [Unknown]
  - Emotional disorder [Unknown]
  - Fatigue [Unknown]
  - Swelling face [Unknown]

NARRATIVE: CASE EVENT DATE: 20180207
